FAERS Safety Report 7141669-0 (Version None)
Quarter: 2010Q4

REPORT INFORMATION
  Report Type: 
  Country: None (occurrence: None)
  Receive Date: 20101207
  Receipt Date: 20101124
  Transmission Date: 20110411
  Serious: Yes (Other)
  Sender: FDA-Public Use
  Company Number: NL-JNJFOC-20101200487

PATIENT
  Sex: Male

DRUGS (4)
  1. REMICADE [Suspect]
     Indication: RHEUMATOID ARTHRITIS
     Route: 042
  2. REMICADE [Suspect]
     Dosage: 8TH INFUSION
     Route: 042
  3. AVODART [Suspect]
     Indication: PROSTATOMEGALY
  4. TAMSULOSIN [Suspect]
     Indication: PROSTATOMEGALY

REACTIONS (4)
  - NAUSEA [None]
  - NEURALGIA [None]
  - TREMOR [None]
  - VOMITING [None]
